FAERS Safety Report 7440021-8 (Version None)
Quarter: 2011Q2

REPORT INFORMATION
  Report Type: 
  Country: None (occurrence: None)
  Receive Date: 20110427
  Receipt Date: 20110418
  Transmission Date: 20111010
  Serious: Yes (Hospitalization, Other)
  Sender: FDA-Public Use
  Company Number: US-ASTRAZENECA-2010SE53669

PATIENT
  Age: 55 Year
  Sex: Male

DRUGS (3)
  1. SYMBICORT [Suspect]
     Dosage: 160/4.5 UG
     Route: 055
  2. LORTAB [Concomitant]
  3. COUMADIN [Concomitant]

REACTIONS (9)
  - POST-TRAUMATIC STRESS DISORDER [None]
  - CEREBRAL ARTERY EMBOLISM [None]
  - AMNESIA [None]
  - CARDIAC ABLATION [None]
  - ABDOMINAL DISCOMFORT [None]
  - ACCIDENT AT HOME [None]
  - CEREBROVASCULAR ACCIDENT [None]
  - COLD SWEAT [None]
  - TRAUMATIC BRAIN INJURY [None]
